FAERS Safety Report 19181806 (Version 1)
Quarter: 2021Q2

REPORT INFORMATION
  Report Type: Spontaneous
  Country: US (occurrence: US)
  Receive Date: 20210426
  Receipt Date: 20210426
  Transmission Date: 20210717
  Serious: No
  Sender: FDA-Public Use
  Company Number: US-TAKEDA-2021TUS024660

PATIENT
  Sex: Male
  Weight: 79 kg

DRUGS (2)
  1. ADDERALL XR [Suspect]
     Active Substance: AMPHETAMINE ASPARTATE\AMPHETAMINE SULFATE\DEXTROAMPHETAMINE SACCHARATE\DEXTROAMPHETAMINE SULFATE
     Indication: STRESS
     Dosage: 30 MILLIGRAM, QID
     Route: 065
  2. MYDAYIS [Suspect]
     Active Substance: AMPHETAMINE ASPARTATE\AMPHETAMINE SULFATE\DEXTROAMPHETAMINE SACCHARATE\DEXTROAMPHETAMINE SULFATE
     Indication: STRESS
     Dosage: 50 MILLIGRAM, QD
     Route: 065
     Dates: start: 20210413

REACTIONS (2)
  - Somnolence [Unknown]
  - Product use in unapproved indication [Unknown]
